FAERS Safety Report 10746289 (Version 1)
Quarter: 2015Q1

REPORT INFORMATION
  Report Type: Spontaneous
  Country: US (occurrence: None)
  Receive Date: 20150120
  Receipt Date: 20150120
  Transmission Date: 20150721
  Serious: No
  Sender: FDA-Public Use
  Company Number: AEGR000792

PATIENT
  Age: 41 Year
  Sex: Male
  Weight: 91.6 kg

DRUGS (9)
  1. PLAVIX (CLOPIDOGREL BISULFATE) [Concomitant]
  2. CARVEDILOL. [Concomitant]
     Active Substance: CARVEDILOL
  3. LISNIOPRIL [Concomitant]
  4. OMEPRAZOLE. [Concomitant]
     Active Substance: OMEPRAZOLE
  5. ZETIA [Concomitant]
     Active Substance: EZETIMIBE
  6. ATORVASTATIN [Concomitant]
     Active Substance: ATORVASTATIN
  7. ASPIRIN (ACETYLSALICYLIC ACID) [Concomitant]
     Active Substance: ASPIRIN
  8. JUXTAPID [Suspect]
     Active Substance: LOMITAPIDE MESYLATE
     Indication: TYPE IIA HYPERLIPIDAEMIA
     Dates: start: 20130614, end: 20130812
  9. NITROSTAT (GLYCERYL TRINITRATE) [Concomitant]

REACTIONS (1)
  - Spinal column stenosis [None]

NARRATIVE: CASE EVENT DATE: 201309
